FAERS Safety Report 5365613-1 (Version None)
Quarter: 2007Q2

REPORT INFORMATION
  Report Type: 
  Country: None (occurrence: None)
  Receive Date: 20070621
  Receipt Date: 20070620
  Transmission Date: 20071010
  Serious: Yes (Hospitalization)
  Sender: FDA-Public Use
  Company Number: SE-BRISTOL-MYERS SQUIBB COMPANY-13821236

PATIENT
  Age: 83 Year
  Sex: Female

DRUGS (6)
  1. HYDREA [Suspect]
     Indication: THROMBOCYTOPENIA
     Dates: end: 20070405
  2. WARAN [Suspect]
     Dates: end: 20070409
  3. OMEPRAZOLE [Concomitant]
  4. FURIX [Concomitant]
  5. IMODIUM [Concomitant]
  6. LINATIL [Concomitant]

REACTIONS (5)
  - BONE MARROW FAILURE [None]
  - EPISTAXIS [None]
  - HAEMATOCHEZIA [None]
  - HAEMATURIA [None]
  - HAEMOGLOBIN DECREASED [None]
